FAERS Safety Report 18158918 (Version 2)
Quarter: 2020Q3

REPORT INFORMATION
  Report Type: Spontaneous
  Country: US (occurrence: US)
  Receive Date: 20200817
  Receipt Date: 20200929
  Transmission Date: 20201103
  Serious: No
  Sender: FDA-Public Use
  Company Number: US-GILEAD-2020-0490087

PATIENT
  Sex: Male
  Weight: 119.73 kg

DRUGS (17)
  1. CLOBETASOL [Concomitant]
     Active Substance: CLOBETASOL
  2. TERBINAFINE. [Concomitant]
     Active Substance: TERBINAFINE
  3. STRIBILD [Suspect]
     Active Substance: COBICISTAT\ELVITEGRAVIR\EMTRICITABINE\TENOFOVIR DISOPROXIL FUMARATE
     Indication: HIV INFECTION
     Dosage: UNK
     Route: 048
     Dates: start: 2012, end: 201802
  4. ACETAMINOPHEN AND CODEINE [Concomitant]
     Active Substance: ACETAMINOPHEN\CODEINE PHOSPHATE
  5. CLOTRIMAZOLE AND BETAMETHASONE [Concomitant]
     Active Substance: BETAMETHASONE\CLOTRIMAZOLE
  6. HYDROCODONE/ACETAMINOPHEN [Concomitant]
     Active Substance: ACETAMINOPHEN\HYDROCODONE
  7. GENVOYA [Concomitant]
     Active Substance: COBICISTAT\ELVITEGRAVIR\EMTRICITABINE\TENOFOVIR ALAFENAMIDE FUMARATE
  8. KETOCONAZOLE. [Concomitant]
     Active Substance: KETOCONAZOLE
  9. SULFAMETHOXAZOLE [Concomitant]
     Active Substance: SULFAMETHOXAZOLE
  10. CLINDAMYCIN. [Concomitant]
     Active Substance: CLINDAMYCIN
  11. TRIAMCINOLONE [Concomitant]
     Active Substance: TRIAMCINOLONE
  12. PRAVASTATIN. [Concomitant]
     Active Substance: PRAVASTATIN
  13. CICLOPIROX. [Concomitant]
     Active Substance: CICLOPIROX
  14. ONDANSETRON [Concomitant]
     Active Substance: ONDANSETRON
  15. PREDNISONE. [Concomitant]
     Active Substance: PREDNISONE
  16. AZITHROMYCIN ANHYDROUS. [Concomitant]
     Active Substance: AZITHROMYCIN ANHYDROUS
  17. FLUTICASONE PROPIONATE. [Concomitant]
     Active Substance: FLUTICASONE PROPIONATE

REACTIONS (5)
  - Renal impairment [Not Recovered/Not Resolved]
  - Pain [Unknown]
  - Blood creatinine increased [Unknown]
  - Anxiety [Unknown]
  - Blood cholesterol increased [Unknown]

NARRATIVE: CASE EVENT DATE: 2012
